FAERS Safety Report 6729863-1 (Version None)
Quarter: 2010Q2

REPORT INFORMATION
  Report Type: 
  Country: None (occurrence: None)
  Receive Date: 20100513
  Receipt Date: 20100503
  Transmission Date: 20101027
  Serious: Yes (Other)
  Sender: FDA-Public Use
  Company Number: 2010AL002697

PATIENT
  Age: 85 Year
  Sex: Male

DRUGS (1)
  1. BICALUTAMIDE [Suspect]
     Indication: PROSTATE CANCER
     Dosage: 150 MG;QD
     Dates: start: 20090401, end: 20091115

REACTIONS (2)
  - DEPRESSED MOOD [None]
  - PROSTATIC SPECIFIC ANTIGEN ABNORMAL [None]
